FAERS Safety Report 7875544-0 (Version None)
Quarter: 2011Q4

REPORT INFORMATION
  Report Type: 
  Country: None (occurrence: None)
  Receive Date: 20111031
  Receipt Date: 20111027
  Transmission Date: 20120403
  Serious: Yes (Death)
  Sender: FDA-Public Use
  Company Number: PHFR2011GB06168

PATIENT
  Sex: Female

DRUGS (1)
  1. CLOZARIL [Suspect]
     Indication: SCHIZOPHRENIA
     Dates: start: 20080314

REACTIONS (4)
  - BRONCHOPNEUMONIA [None]
  - SCHIZOPHRENIA [None]
  - CARDIAC ARREST [None]
  - BRAIN HYPOXIA [None]
